FAERS Safety Report 10147453 (Version 1)
Quarter: 2014Q2

REPORT INFORMATION
  Report Type: Spontaneous
  Country: PL (occurrence: PL)
  Receive Date: 20140501
  Receipt Date: 20140501
  Transmission Date: 20141212
  Serious: Yes (Death, Other)
  Sender: FDA-Public Use
  Company Number: PL-BAXTER-2014BAX019010

PATIENT
  Age: 69 Year
  Sex: Male

DRUGS (4)
  1. ENDOXAN [Suspect]
     Indication: PLASMA CELL MYELOMA
     Route: 065
     Dates: start: 201105
  2. THALIDOMIDE [Suspect]
     Indication: PLASMA CELL MYELOMA
     Route: 065
     Dates: start: 201105
  3. DEXAMETHASONE [Suspect]
     Indication: PRODUCT USED FOR UNKNOWN INDICATION
     Route: 065
     Dates: start: 201105
  4. PAMIDRONIC ACID [Suspect]
     Indication: PRODUCT USED FOR UNKNOWN INDICATION
     Route: 065

REACTIONS (2)
  - Haemoglobin decreased [Unknown]
  - Disease progression [Fatal]
